FAERS Safety Report 9328701 (Version 1)
Quarter: 2013Q2

REPORT INFORMATION
  Report Type: Spontaneous
  Country: US (occurrence: US)
  Receive Date: 20130604
  Receipt Date: 20130604
  Transmission Date: 20140414
  Serious: No
  Sender: FDA-Public Use
  Company Number: US-SANOFI-AVENTIS-2013SA010115

PATIENT
  Age: 73 Year
  Sex: Male

DRUGS (3)
  1. LANTUS SOLOSTAR [Suspect]
     Indication: TYPE 3 DIABETES MELLITUS
     Dosage: DOSE:60 UNIT(S)
     Route: 051
  2. LANTUS SOLOSTAR [Suspect]
     Indication: TYPE 3 DIABETES MELLITUS
     Dosage: DOSE:40 UNIT(S)
     Route: 051
  3. SOLOSTAR [Suspect]

REACTIONS (1)
  - Hepatic enzyme increased [Unknown]
